FAERS Safety Report 8618326-4 (Version None)
Quarter: 2012Q3

REPORT INFORMATION
  Report Type: 
  Country: None (occurrence: None)
  Receive Date: 20120824
  Receipt Date: 20120814
  Transmission Date: 20120928
  Serious: No
  Sender: FDA-Public Use
  Company Number: US-BIOGENIDEC-2012BI031647

PATIENT
  Sex: Female

DRUGS (3)
  1. TYSABRI [Suspect]
     Indication: MULTIPLE SCLEROSIS
     Route: 042
     Dates: start: 20070914
  2. AVONEX [Concomitant]
     Route: 030
     Dates: end: 20070825
  3. AVONEX [Concomitant]
     Indication: MULTIPLE SCLEROSIS
     Route: 030
     Dates: start: 19990813

REACTIONS (4)
  - BLADDER PAIN [None]
  - BLADDER SPASM [None]
  - URINARY SEDIMENT PRESENT [None]
  - TRIGEMINAL NEURALGIA [None]
